FAERS Safety Report 8207928-5 (Version None)
Quarter: 2012Q1

REPORT INFORMATION
  Report Type: 
  Country: None (occurrence: None)
  Receive Date: 20120314
  Receipt Date: 20120312
  Transmission Date: 20120608
  Serious: No
  Sender: FDA-Public Use
  Company Number: US-PFIZER INC-2012025352

PATIENT
  Sex: Female

DRUGS (6)
  1. LYRICA [Suspect]
     Indication: PAIN
     Dosage: 75 MG, UNK
     Route: 048
  2. CYMBALTA [Concomitant]
     Dosage: UNK
  3. LYRICA [Suspect]
     Dosage: 150 MG, UNK
     Route: 048
     Dates: end: 20120127
  4. PRAVASTATIN [Concomitant]
     Dosage: UNK
  5. OMEPRAZOLE [Concomitant]
     Dosage: UNK
  6. CELEBREX [Suspect]
     Indication: ARTHRALGIA
     Dosage: UNK
     Route: 048

REACTIONS (2)
  - WITHDRAWAL SYNDROME [None]
  - MALAISE [None]
